FAERS Safety Report 8231735-0 (Version None)
Quarter: 2012Q1

REPORT INFORMATION
  Report Type: 
  Country: None (occurrence: None)
  Receive Date: 20120321
  Receipt Date: 20120309
  Transmission Date: 20120608
  Serious: Yes (Death, Hospitalization)
  Sender: FDA-Public Use
  Company Number: 2012AP000690

PATIENT
  Age: 27 Year
  Sex: Female

DRUGS (7)
  1. SERTRALINE HYDROCHLORIDE [Suspect]
     Indication: DEPRESSION
     Dosage: 50 MG ; 50 MG;QD
  2. HALOPERIDOL [Suspect]
     Indication: AGITATION
     Dosage: 5 MG;IM
     Route: 030
  3. RISPERIDONE [Suspect]
     Indication: HALLUCINATION, AUDITORY
     Dosage: 0.5 MG;HS
  4. LORAZEPAM [Suspect]
     Indication: CATATONIA
     Dosage: 2 MG;IV ; 1 MG
     Route: 042
  5. LORAZEPAM [Suspect]
     Indication: AGITATION
     Dosage: 2 MG;IV ; 1 MG
     Route: 042
  6. LORAZEPAM [Suspect]
     Dosage: 2 MG;IM
     Route: 030
  7. QUETIAPINE [Suspect]
     Indication: DEPRESSION
     Dosage: 25 MG

REACTIONS (20)
  - MUTISM [None]
  - EYELID DISORDER [None]
  - PSYCHOMOTOR RETARDATION [None]
  - POOR QUALITY SLEEP [None]
  - FEELING OF DESPAIR [None]
  - PULMONARY EMBOLISM [None]
  - HYPOKALAEMIA [None]
  - UNRESPONSIVE TO STIMULI [None]
  - DEPRESSION [None]
  - CATATONIA [None]
  - BLOOD FIBRINOGEN INCREASED [None]
  - DECREASED APPETITE [None]
  - FEELINGS OF WORTHLESSNESS [None]
  - WHITE BLOOD CELL COUNT INCREASED [None]
  - AGITATION [None]
  - HALLUCINATION, AUDITORY [None]
  - CARDIO-RESPIRATORY ARREST [None]
  - KETONURIA [None]
  - STUPOR [None]
  - BLOOD PRESSURE INCREASED [None]
